FAERS Safety Report 7405215-6 (Version None)
Quarter: 2011Q2

REPORT INFORMATION
  Report Type: 
  Country: None (occurrence: None)
  Receive Date: 20110411
  Receipt Date: 20110328
  Transmission Date: 20111010
  Serious: Yes (Other)
  Sender: FDA-Public Use
  Company Number: BR-BAYER-2011-026995

PATIENT
  Age: 68 Year
  Sex: Female

DRUGS (8)
  1. SECOTEX [Concomitant]
     Indication: PRODUCT USED FOR UNKNOWN INDICATION
  2. NEXIUM [Concomitant]
     Indication: PRODUCT USED FOR UNKNOWN INDICATION
  3. FORASEQ [Concomitant]
     Indication: PRODUCT USED FOR UNKNOWN INDICATION
  4. RIVOTRIL [Concomitant]
     Indication: PRODUCT USED FOR UNKNOWN INDICATION
  5. BUP [Concomitant]
     Indication: PRODUCT USED FOR UNKNOWN INDICATION
  6. BETAFERON [Suspect]
     Indication: PRODUCT USED FOR UNKNOWN INDICATION
     Route: 058
  7. SYNTHROID [Concomitant]
     Indication: THYROID DISORDER
  8. MANTIDAN [Concomitant]
     Indication: PRODUCT USED FOR UNKNOWN INDICATION

REACTIONS (5)
  - DEPRESSION [None]
  - INJECTION SITE PAIN [None]
  - MALAISE [None]
  - HYPOGLYCAEMIA [None]
  - THYROID NEOPLASM [None]
